FAERS Safety Report 8270644 (Version 3)
Quarter: 2013Q2

REPORT INFORMATION
  Report Type: Spontaneous
  Country: US (occurrence: None)
  Receive Date: 20111122
  Receipt Date: 20120426
  Transmission Date: 20140414
  Serious: Yes (Other)
  Sender: FDA-Public Use
  Company Number: PHHY2011US47842

PATIENT
  Age: 43 Year
  Sex: Female
  Weight: 165 kg

DRUGS (6)
  1. GILENYA [Suspect]
     Indication: MULTIPLE SCLEROSIS
     Route: 048
     Dates: start: 20110526, end: 20110628
  2. ZANAFLEX (TIZANIDINE HYDROCHLORIDE) [Concomitant]
  3. AMBIEN (ZOLPIDEM TARTRATE) [Concomitant]
  4. EFFEXOR (VENLAFAXINE HYDROCHLORIDE) UNKNOWN [Concomitant]
  5. PROTONIX (PANTOPRAZOLE) [Concomitant]
  6. PROPRANOLOL (PROPRANOLOL) [Concomitant]

REACTIONS (4)
  - HEART RATE DECREASED [None]
  - BLOOD PRESSURE DECREASED [None]
  - BLOOD PRESSURE INCREASED [None]
  - Hypertension [None]
